FAERS Safety Report 7160532-2 (Version None)
Quarter: 2010Q4

REPORT INFORMATION
  Report Type: 
  Country: None (occurrence: None)
  Receive Date: 20101214
  Receipt Date: 20100423
  Transmission Date: 20110411
  Serious: No
  Sender: FDA-Public Use
  Company Number: US-AMGEN-TCS378127

PATIENT

DRUGS (2)
  1. ENBREL [Suspect]
     Indication: RHEUMATOID ARTHRITIS
     Dosage: 50 MG, QWK
     Route: 058
     Dates: start: 20060912, end: 20100306
  2. ENBREL [Suspect]
     Dosage: 50 MG, QWK
     Route: 058
     Dates: start: 20060912, end: 20100306

REACTIONS (6)
  - BURSA DISORDER [None]
  - CELLULITIS [None]
  - FATIGUE [None]
  - HIDRADENITIS [None]
  - RHEUMATOID ARTHRITIS [None]
  - RHEUMATOID NODULE [None]
